FAERS Safety Report 8605576-6 (Version None)
Quarter: 2012Q3

REPORT INFORMATION
  Report Type: 
  Country: None (occurrence: None)
  Receive Date: 20120820
  Receipt Date: 20120813
  Transmission Date: 20120928
  Serious: Yes (Hospitalization)
  Sender: FDA-Public Use
  Company Number: GB-B.I. PHARMACEUTICALS,INC./RIDGEFIELD-2012-UK-01013UK

PATIENT
  Sex: Male
  Weight: 93 kg

DRUGS (14)
  1. BENDROFLUMETHIAZIDE [Concomitant]
     Dosage: 2.5 MG
     Dates: start: 20120101, end: 20120501
  2. BISOPROLOL FUMARATE [Concomitant]
     Indication: CARDIAC FAILURE
     Dosage: 2.5 MG
     Route: 048
     Dates: start: 20110501, end: 20120501
  3. ACETAMINOPHEN AND CODEINE PHOSPHATE [Concomitant]
     Indication: PAIN
     Dosage: 8 ANZ
     Route: 048
     Dates: start: 20120101, end: 20120501
  4. DIGOXIN [Concomitant]
     Dosage: 125 MCG
     Dates: start: 20120101, end: 20120501
  5. LEVOTHYROXINE SODIUM [Concomitant]
     Dosage: 100 MCG
     Dates: start: 20120101, end: 20120501
  6. METFORMIN HCL [Concomitant]
     Indication: DIABETES MELLITUS
     Dosage: 2 BD
     Route: 048
     Dates: start: 20120101, end: 20120501
  7. LACIDIPINE [Concomitant]
     Indication: BLOOD PRESSURE
     Dosage: 4 MG
     Route: 048
     Dates: start: 20120101, end: 20120501
  8. ASPIRIN [Concomitant]
     Indication: MYOCARDIAL ISCHAEMIA
  9. PRADAXA [Suspect]
     Indication: ATRIAL FIBRILLATION
     Dosage: 300 MG
     Route: 048
     Dates: start: 20120221, end: 20120515
  10. ATORVASTATIN [Concomitant]
     Indication: LIPIDS
     Dosage: 20 MG
     Route: 048
     Dates: start: 20120101, end: 20120501
  11. GLIMEPIRIDE [Concomitant]
     Dosage: 4 MG
     Dates: start: 20120101, end: 20120501
  12. SITAGLIPTIN [Concomitant]
     Indication: DIABETES MELLITUS
     Dosage: 100 MG
     Route: 048
     Dates: start: 20120101, end: 20120501
  13. CANDESARTAN CILEXETIL [Concomitant]
     Indication: CARDIAC FAILURE
  14. CANDESARTAN CILEXETIL [Concomitant]
     Indication: BLOOD PRESSURE
     Dosage: 16 MG
     Route: 048
     Dates: start: 20120101, end: 20120501

REACTIONS (1)
  - ACUTE MYOCARDIAL INFARCTION [None]
